FAERS Safety Report 6201945-2 (Version None)
Quarter: 2009Q2

REPORT INFORMATION
  Report Type: 
  Country: None (occurrence: None)
  Receive Date: 20090520
  Receipt Date: 20090510
  Transmission Date: 20091009
  Serious: Yes (Hospitalization)
  Sender: FDA-Public Use
  Company Number: CHPA2009US11522

PATIENT
  Age: 26 Year
  Sex: Female
  Weight: 27.2 kg

DRUGS (1)
  1. EX-LAX UNKNOWN SENNA (NCH)(SENNA GLYCOSIDES (CA SALTS OF PURIFIED SENN [Suspect]
     Indication: CONSTIPATION
     Dosage: 2 TABLETS, ONCE, ORAL
     Route: 048
     Dates: start: 20090509, end: 20090509

REACTIONS (5)
  - ABDOMINAL PAIN UPPER [None]
  - ASTHENIA [None]
  - PNEUMONIA [None]
  - UNRESPONSIVE TO STIMULI [None]
  - VOMITING [None]
